FAERS Safety Report 4860946-7 (Version None)
Quarter: 2005Q4

REPORT INFORMATION
  Report Type: 
  Country: None (occurrence: None)
  Receive Date: 20051220
  Receipt Date: 20051213
  Transmission Date: 20060501
  Serious: Yes (Hospitalization)
  Sender: FDA-Public Use
  Company Number: FR-BRISTOL-MYERS SQUIBB COMPANY-13215843

PATIENT
  Age: 25 Year
  Sex: Female

DRUGS (4)
  1. SUSTIVA [Suspect]
     Route: 048
     Dates: start: 20050712
  2. VIDEX [Suspect]
     Route: 048
  3. EPIVIR [Suspect]
     Dates: start: 20050712
  4. RIFAMPICIN [Concomitant]

REACTIONS (1)
  - DELIRIUM [None]
